FAERS Safety Report 8156022-0 (Version None)
Quarter: 2012Q1

REPORT INFORMATION
  Report Type: 
  Country: None (occurrence: None)
  Receive Date: 20120222
  Receipt Date: 20120216
  Transmission Date: 20120608
  Serious: Yes (Other)
  Sender: FDA-Public Use
  Company Number: FR-ASTELLAS-2012EU000242

PATIENT
  Sex: Male
  Weight: 70 kg

DRUGS (18)
  1. PROGRAF [Suspect]
     Dosage: 10 MG, UNKNOWN/D
     Route: 048
     Dates: start: 20101123, end: 20101221
  2. PROGRAF [Suspect]
     Dosage: 8 MG, UNKNOWN/D
     Route: 048
     Dates: start: 20110830, end: 20111001
  3. PROGRAF [Suspect]
     Dosage: 13.5 MG, UNKNOWN/D
     Route: 048
     Dates: start: 20101006, end: 20101011
  4. PROGRAF [Suspect]
     Dosage: 8.5 MG, UNKNOWN/D
     Route: 048
     Dates: start: 20110411, end: 20110830
  5. TENORMIN [Concomitant]
     Indication: HYPERTENSION
     Dosage: 100 MG, UNKNOWN/D
     Route: 048
     Dates: start: 20101105
  6. PROGRAF [Suspect]
     Dosage: 14.5 MG, UNKNOWN/D
     Route: 048
     Dates: start: 20100924, end: 20101006
  7. THYMOGLOBULIN [Suspect]
     Dosage: UNK
     Route: 065
     Dates: start: 20100824
  8. PROGRAF [Suspect]
     Dosage: 15 MG, UNKNOWN/D
     Route: 048
     Dates: start: 20100920, end: 20100924
  9. PROGRAF [Suspect]
     Dosage: 9.5 MG, UNKNOWN/D
     Route: 048
     Dates: start: 20101221, end: 20110224
  10. PROGRAF [Suspect]
     Indication: PROPHYLAXIS AGAINST TRANSPLANT REJECTION
     Dosage: 16 MG, UNKNOWN/D
     Route: 048
     Dates: start: 20100824, end: 20100920
  11. PROGRAF [Suspect]
     Dosage: 9 MG, UNKNOWN/D
     Route: 048
     Dates: start: 20110224, end: 20110411
  12. LASIX [Concomitant]
     Indication: HYPERTENSION
     Dosage: 20 MG, UNKNOWN/D
     Route: 048
     Dates: start: 20101123
  13. PREDNISOLONE [Concomitant]
     Indication: PROPHYLAXIS AGAINST TRANSPLANT REJECTION
     Dosage: 5 MG, UNKNOWN/D
     Route: 048
     Dates: start: 20110830
  14. PROGRAF [Suspect]
     Dosage: 11 MG, UNKNOWN/D
     Route: 048
     Dates: start: 20101011, end: 20101123
  15. MYCOPHENOLATE MOFETIL (CELLCEPT) [Suspect]
     Indication: PROPHYLAXIS AGAINST TRANSPLANT REJECTION
     Dosage: 1000 MG, UNKNOWN/D
     Route: 048
     Dates: start: 20110607
  16. IPERTEN [Concomitant]
     Indication: HYPERTENSION
     Dosage: 20 MG, UNKNOWN/D
     Route: 048
     Dates: start: 20101105
  17. ATORVASTATIN [Concomitant]
     Indication: HYPERCHOLESTEROLAEMIA
     Dosage: 20 MG, UNKNOWN/D
     Route: 048
     Dates: start: 20101123
  18. PERINDOPRIL ERBUMINE [Concomitant]
     Indication: HYPERTENSION
     Dosage: 7.5 MG, UNKNOWN/D
     Route: 048
     Dates: start: 20110830

REACTIONS (1)
  - SQUAMOUS CELL CARCINOMA [None]
